FAERS Safety Report 6786139-4 (Version None)
Quarter: 2010Q2

REPORT INFORMATION
  Report Type: 
  Country: None (occurrence: None)
  Receive Date: 20100621
  Receipt Date: 20100621
  Transmission Date: 20101027
  Serious: Yes (Other)
  Sender: FDA-Public Use
  Company Number: None

PATIENT
  Age: 48 Year
  Sex: Female
  Weight: 86.1834 kg

DRUGS (1)
  1. XANAX XR [Suspect]
     Indication: ANXIETY
     Dosage: ONE DAY PO
     Route: 048

REACTIONS (2)
  - DYSPNOEA [None]
  - RASH [None]
